FAERS Safety Report 8816359 (Version 1)
Quarter: 2012Q4

REPORT INFORMATION
  Report Type: Spontaneous
  Country: US (occurrence: None)
  Receive Date: 20120927
  Receipt Date: 20120927
  Transmission Date: 20130627
  Serious: Yes (Other)
  Sender: FDA-Public Use
  Company Number: None

PATIENT
  Age: 23 Year
  Weight: 58.06 kg

DRUGS (2)
  1. LEVETIRACETAM [Suspect]
     Dosage: apr-sept
     Route: 048
  2. TOPIRAMATE [Suspect]
     Dosage: aug-sept
     Route: 048

REACTIONS (1)
  - Convulsion [None]
